FAERS Safety Report 6640272-6 (Version None)
Quarter: 2010Q1

REPORT INFORMATION
  Report Type: 
  Country: None (occurrence: None)
  Receive Date: 20100318
  Receipt Date: 20100308
  Transmission Date: 20100710
  Serious: Yes (Other)
  Sender: FDA-Public Use
  Company Number: JP-ROCHE-691156

PATIENT
  Sex: Female
  Weight: 46 kg

DRUGS (9)
  1. CAPECITABINE [Suspect]
     Indication: COLON CANCER
     Dosage: DRUG NAME REPORTED: XELODA 300(CAPECITABINE)
     Route: 048
     Dates: start: 20090425, end: 20090508
  2. CAPECITABINE [Suspect]
     Route: 048
     Dates: start: 20090516, end: 20090529
  3. CAPECITABINE [Suspect]
     Dosage: ACTION TAKEN: DISCONTINUED
     Route: 048
     Dates: start: 20090606, end: 20090615
  4. CAPECITABINE [Suspect]
     Dosage: ACTION TAKEN: DISCONTINUED
     Route: 048
     Dates: start: 20090919, end: 20091002
  5. CAPECITABINE [Suspect]
     Dosage: ACTION TAKEN: DISCONTINUED
     Route: 048
     Dates: start: 20091031, end: 20091106
  6. CAPECITABINE [Suspect]
     Dosage: ACTION TAKEN: DOSE DECREASED
     Route: 048
     Dates: start: 20091121, end: 20091204
  7. CAPECITABINE [Suspect]
     Dosage: ACTION TAKEN: DOSE DECREASED
     Route: 048
     Dates: start: 20091212, end: 20091225
  8. CAPECITABINE [Suspect]
     Dosage: ACTION TAKEN: DOSE DECREASED
     Route: 048
     Dates: start: 20100102, end: 20100115
  9. PYDOXAL [Concomitant]
     Route: 048
     Dates: start: 20090423

REACTIONS (2)
  - INTESTINAL OBSTRUCTION [None]
  - NEUTROPHIL COUNT DECREASED [None]
